FAERS Safety Report 5748514-6 (Version None)
Quarter: 2008Q2

REPORT INFORMATION
  Report Type: 
  Country: None (occurrence: None)
  Receive Date: 20080521
  Receipt Date: 20080508
  Transmission Date: 20081010
  Serious: Yes (Other)
  Sender: FDA-Public Use
  Company Number: 2008012223

PATIENT
  Age: 49 Year
  Sex: Male
  Weight: 83.9 kg

DRUGS (1)
  1. VISINE A.C. (ZINC SULFATE, TETRYZOLINE) [Suspect]
     Indication: EYE PRURITUS
     Dosage: ONE DROP IN EACH EYE ONCE A DAY, OPHTHALMIC
     Route: 047
     Dates: start: 20080506, end: 20080508

REACTIONS (5)
  - EYE IRRITATION [None]
  - EYELID IRRITATION [None]
  - EYELIDS PRURITUS [None]
  - PHARMACEUTICAL PRODUCT COMPLAINT [None]
  - VISION BLURRED [None]
